FAERS Safety Report 4282077-X (Version None)
Quarter: 2004Q1

REPORT INFORMATION
  Report Type: 
  Country: None (occurrence: None)
  Receive Date: 20040130
  Receipt Date: 20030225
  Transmission Date: 20041129
  Serious: No
  Sender: FDA-Public Use
  Company Number: US-BRISTOL-MYERS SQUIBB COMPANY-12195251

PATIENT
  Age: 22 Year
  Sex: Male
  Weight: 109 kg

DRUGS (4)
  1. TRAZODONE HCL [Suspect]
     Indication: SLEEP DISORDER
     Dosage: PAST 2-3 YEARS;WEAN OVER THE LAST 3 WEEKS;PRIOR TO WEANING TOOK 300MG;LAST 5-6 DAYS 150 EVERY HS
     Route: 048
  2. EFFEXOR [Concomitant]
  3. SINEMET [Concomitant]
  4. ATIVAN [Concomitant]

REACTIONS (7)
  - CHILLS [None]
  - DRUG INEFFECTIVE [None]
  - DRUG WITHDRAWAL SYNDROME [None]
  - FEELING ABNORMAL [None]
  - HANGOVER [None]
  - HEADACHE [None]
  - INCREASED APPETITE [None]
